FAERS Safety Report 14179307 (Version 1)
Quarter: 2017Q4

REPORT INFORMATION
  Report Type: Spontaneous
  Country: US (occurrence: US)
  Receive Date: 20171111
  Receipt Date: 20171111
  Transmission Date: 20180321
  Serious: No
  Sender: FDA-Public Use
  Company Number: US-TEVA-823605ACC

PATIENT
  Sex: Female

DRUGS (1)
  1. PARAGARD T 380A [Suspect]
     Active Substance: COPPER
     Indication: CONTRACEPTION
     Dosage: IN FOR OVER 10 YEARS
     Route: 065

REACTIONS (3)
  - Complication associated with device [Unknown]
  - Intentional product use issue [Unknown]
  - Device breakage [Unknown]

NARRATIVE: CASE EVENT DATE: 20171006
